FAERS Safety Report 6413800-3 (Version None)
Quarter: 2009Q4

REPORT INFORMATION
  Report Type: 
  Country: None (occurrence: None)
  Receive Date: 20091026
  Receipt Date: 20091020
  Transmission Date: 20100525
  Serious: Yes (Other)
  Sender: FDA-Public Use
  Company Number: A0798313A

PATIENT
  Age: 76 Year
  Sex: Male

DRUGS (6)
  1. BEXXAR [Suspect]
     Indication: DRUG USE FOR UNKNOWN INDICATION
     Route: 065
     Dates: start: 20090706
  2. POTASSIUM IODIDE [Concomitant]
     Route: 065
  3. PROSCAR [Concomitant]
     Route: 065
  4. PRILOSEC [Concomitant]
     Route: 065
  5. JUICE PLUS [Concomitant]
     Route: 065
  6. ASPIRIN [Concomitant]
     Route: 065

REACTIONS (11)
  - ABDOMINAL PAIN [None]
  - ALANINE AMINOTRANSFERASE INCREASED [None]
  - ASPARTATE AMINOTRANSFERASE INCREASED [None]
  - BILE DUCT OBSTRUCTION [None]
  - BLOOD ALKALINE PHOSPHATASE INCREASED [None]
  - BLOOD BILIRUBIN INCREASED [None]
  - DRUG INEFFECTIVE [None]
  - INFLAMMATION [None]
  - JAUNDICE [None]
  - LYMPHADENOPATHY [None]
  - LYMPHOMA [None]
